FAERS Safety Report 5010970-9 (Version None)
Quarter: 2006Q2

REPORT INFORMATION
  Report Type: 
  Country: None (occurrence: None)
  Receive Date: 20060525
  Receipt Date: 20060517
  Transmission Date: 20061013
  Serious: Yes (Hospitalization)
  Sender: FDA-Public Use
  Company Number: 2006AP02295

PATIENT
  Age: 68 Year
  Sex: Female

DRUGS (12)
  1. CRESTOR [Suspect]
     Indication: HYPERCHOLESTEROLAEMIA
     Route: 048
     Dates: end: 20060420
  2. CRESTOR [Suspect]
     Route: 048
     Dates: start: 20060428
  3. AMARYL [Suspect]
     Route: 048
  4. ASPIRIN [Concomitant]
     Route: 048
  5. PANALDINE [Concomitant]
     Route: 048
  6. ARTIST [Concomitant]
     Route: 048
  7. RENIVACE [Concomitant]
     Route: 048
  8. GASTER [Concomitant]
     Route: 048
  9. MAGNESIUM OXIDE [Concomitant]
     Route: 048
  10. MUCOSTA [Concomitant]
     Route: 048
  11. BIOFERMIN [Concomitant]
     Route: 048
  12. NITRODERM [Concomitant]
     Route: 065

REACTIONS (2)
  - DERMATITIS EXFOLIATIVE [None]
  - DRUG ERUPTION [None]
